FAERS Safety Report 10700475 (Version 2)
Quarter: 2015Q1

REPORT INFORMATION
  Report Type: Spontaneous
  Country: IN (occurrence: None)
  Receive Date: 20150107
  Receipt Date: 20150112
  Transmission Date: 20150721
  Serious: Yes (Other)
  Sender: FDA-Public Use
  Company Number: IN2014GSK045523

PATIENT
  Age: 42 Year
  Sex: Female

DRUGS (4)
  1. ZIDOVUDINE (ZIDOVUDINE) UNKNOWN) [Suspect]
     Active Substance: ZIDOVUDINE
     Indication: HIV INFECTION
     Dates: start: 20130424
  2. STAVUDINE (STAVUDINE) [Concomitant]
     Active Substance: STAVUDINE
  3. LAMIVUDINE (LAMIVUDINE) UNKNOWN [Suspect]
     Active Substance: LAMIVUDINE
     Indication: HIV INFECTION
     Dates: start: 20110726
  4. NEVIRAPINE (NEVIRAPINE) [Suspect]
     Active Substance: NEVIRAPINE
     Indication: HIV INFECTION
     Dates: start: 20110726

REACTIONS (14)
  - Generalised oedema [None]
  - Dyspnoea [None]
  - Sinus tachycardia [None]
  - Pleural effusion [None]
  - Ascites [None]
  - Oedema peripheral [None]
  - Hepatomegaly [None]
  - Splenomegaly [None]
  - Cardiomegaly [None]
  - Aspartate aminotransferase abnormal [None]
  - Alanine aminotransferase abnormal [None]
  - Congestive cardiomyopathy [None]
  - Pyrexia [None]
  - Systolic dysfunction [None]
